FAERS Safety Report 17974048 (Version 1)
Quarter: 2020Q3

REPORT INFORMATION
  Report Type: Spontaneous
  Country: US (occurrence: US)
  Receive Date: 20200702
  Receipt Date: 20200702
  Transmission Date: 20201103
  Serious: Yes (Hospitalization)
  Sender: FDA-Public Use
  Company Number: None

PATIENT
  Age: 67 Year
  Sex: Male

DRUGS (1)
  1. INCOBOTULINUMTOXINA INCOBOTULINUMTOXINA UNITVIL 100MG/VIL [Suspect]
     Active Substance: INCOBOTULINUMTOXINA
     Indication: MIGRAINE
     Dates: start: 20190829, end: 20190829

REACTIONS (4)
  - Drug ineffective [None]
  - Migraine [None]
  - Symptom recurrence [None]
  - Product substitution issue [None]

NARRATIVE: CASE EVENT DATE: 20190829
